FAERS Safety Report 7884203-X (Version None)
Quarter: 2011Q4

REPORT INFORMATION
  Report Type: 
  Country: None (occurrence: None)
  Receive Date: 20111102
  Receipt Date: 20111027
  Transmission Date: 20120403
  Serious: Yes (Life-Threatening)
  Sender: FDA-Public Use
  Company Number: NZ-ROXANE LABORATORIES, INC.-2011-RO-01546RO

PATIENT
  Age: 82 Year
  Sex: Male

DRUGS (1)
  1. CYCLOPHOSPHAMIDE [Suspect]
     Indication: MULTIPLE MYELOMA
     Route: 048

REACTIONS (3)
  - CYSTITIS HAEMORRHAGIC [None]
  - TERMINAL STATE [None]
  - BLADDER SPASM [None]
